FAERS Safety Report 5431313-2 (Version None)
Quarter: 2007Q3

REPORT INFORMATION
  Report Type: 
  Country: None (occurrence: None)
  Receive Date: 20070830
  Receipt Date: 20070412
  Transmission Date: 20080115
  Serious: No
  Sender: FDA-Public Use
  Company Number: A0647487A

PATIENT
  Sex: Male

DRUGS (4)
  1. WELLBUTRIN [Suspect]
     Indication: DEPRESSION
     Dosage: 150MG IN THE MORNING
     Route: 048
  2. WELLBUTRIN [Suspect]
     Route: 048
  3. WELLBUTRIN [Suspect]
     Route: 048
  4. LEXAPRO [Concomitant]
     Indication: DEPRESSION
     Dosage: 10MG AT NIGHT
     Route: 048

REACTIONS (3)
  - ANXIETY [None]
  - DRUG INEFFECTIVE [None]
  - TREMOR [None]
